FAERS Safety Report 20070687 (Version 2)
Quarter: 2021Q4

REPORT INFORMATION
  Report Type: Spontaneous
  Country: US (occurrence: US)
  Receive Date: 20211115
  Receipt Date: 20211124
  Transmission Date: 20220303
  Serious: Yes (Hospitalization, Other)
  Sender: FDA-Public Use
  Company Number: US-ORGANON-O2111USA001419

PATIENT
  Age: 32 Year
  Sex: Female
  Weight: 60.32 kg

DRUGS (2)
  1. NEXPLANON [Suspect]
     Active Substance: ETONOGESTREL
     Indication: Contraception
     Dosage: ONE EVERY THREE YEARS
     Route: 059
     Dates: start: 20181212
  2. ELIQUIS [Concomitant]
     Active Substance: APIXABAN
     Dosage: UNK, REPORTED AS ^ELOQUIST^

REACTIONS (4)
  - Pulmonary embolism [Not Recovered/Not Resolved]
  - Device dislocation [Not Recovered/Not Resolved]
  - COVID-19 [Not Recovered/Not Resolved]
  - Complication of device removal [Not Recovered/Not Resolved]

NARRATIVE: CASE EVENT DATE: 20211110
